FAERS Safety Report 7236303-5 (Version None)
Quarter: 2011Q1

REPORT INFORMATION
  Report Type: 
  Country: None (occurrence: None)
  Receive Date: 20110120
  Receipt Date: 20110107
  Transmission Date: 20110831
  Serious: No
  Sender: FDA-Public Use
  Company Number: CR-ELI_LILLY_AND_COMPANY-CR201101002039

PATIENT
  Age: 62 Year
  Sex: Female

DRUGS (3)
  1. NSAID'S [Concomitant]
  2. BENZODIAZEPINE DERIVATIVES [Concomitant]
  3. DULOXETINE HYDROCHLORIDE [Suspect]
     Indication: NEURALGIA
     Dosage: 60 MG, DAILY (1/D)
     Route: 048
     Dates: start: 20101001

REACTIONS (1)
  - GAMMA-GLUTAMYLTRANSFERASE INCREASED [None]
